FAERS Safety Report 7801404-7 (Version None)
Quarter: 2011Q4

REPORT INFORMATION
  Report Type: 
  Country: None (occurrence: None)
  Receive Date: 20111007
  Receipt Date: 20110926
  Transmission Date: 20120403
  Serious: Yes (Hospitalization)
  Sender: FDA-Public Use
  Company Number: US-BAYER-2011-057633

PATIENT
  Age: 41 Year
  Sex: Female
  Weight: 100.23 kg

DRUGS (10)
  1. HYDROCODONE BITARTRATE AND ACETAMINOPHEN [Concomitant]
     Route: 048
  2. LAMICTAL [Concomitant]
     Dosage: 100 MG, UNK
     Route: 048
  3. YAZ [Suspect]
     Indication: CONTRACEPTION
     Dosage: UNK
     Route: 048
     Dates: start: 20090602, end: 20090721
  4. CLONAZEPAM [Concomitant]
     Dosage: 1 MG, BID
     Route: 048
  5. YAZ [Suspect]
     Indication: PREMENSTRUAL SYNDROME
  6. ZOLOFT [Concomitant]
     Dosage: 100 MG, QD
     Route: 048
     Dates: start: 20010101
  7. TRAZODONE HYDROCHLORIDE [Concomitant]
     Dosage: 100 MG, QD
     Route: 048
     Dates: start: 20010101
  8. YAZ [Suspect]
     Indication: MENORRHAGIA
  9. CYCLOBENZAPRINE [Concomitant]
     Dosage: 10 MG, UNK
     Route: 048
  10. LAMOTRIGINE [Concomitant]
     Dosage: 25 MG, UNK
     Route: 048

REACTIONS (7)
  - DEPRESSION [None]
  - CHEST PAIN [None]
  - ANXIETY [None]
  - DYSPNOEA [None]
  - PAIN IN EXTREMITY [None]
  - FATIGUE [None]
  - PULMONARY EMBOLISM [None]
